FAERS Safety Report 11647960 (Version 4)
Quarter: 2016Q4

REPORT INFORMATION
  Report Type: Report from Study
  Country: CA (occurrence: CA)
  Receive Date: 20151021
  Receipt Date: 20161208
  Transmission Date: 20170206
  Serious: Yes (Death, Hospitalization, Other)
  Sender: FDA-Public Use
  Company Number: PHHY2015CA125520

PATIENT
  Age: 67 Year
  Sex: Male

DRUGS (2)
  1. SANDOSTATIN LAR DEPOT [Suspect]
     Active Substance: OCTREOTIDE ACETATE
     Indication: INTESTINAL OBSTRUCTION
     Dosage: 10 MG, QMO (ONCE A MONTH)
     Route: 030
     Dates: start: 20150914
  2. SANDOSTATIN [Suspect]
     Active Substance: OCTREOTIDE ACETATE
     Indication: INTESTINAL OBSTRUCTION
     Dosage: 50 UG, QD (HS, FOR 2 WEEKS POST FIRST SANDOSTATIN LAR)
     Route: 058
     Dates: start: 20150701

REACTIONS (6)
  - Cardiac failure [Unknown]
  - Product use issue [Unknown]
  - Pulmonary embolism [Unknown]
  - Emphysema [Unknown]
  - Death [Fatal]
  - Myocardial infarction [Unknown]

NARRATIVE: CASE EVENT DATE: 20150914
